FAERS Safety Report 25611733 (Version 1)
Quarter: 2025Q3

REPORT INFORMATION
  Report Type: Spontaneous
  Country: US (occurrence: None)
  Receive Date: 20250725
  Receipt Date: 20250725
  Transmission Date: 20251021
  Serious: Yes (Hospitalization)
  Sender: FDA-CTU
  Company Number: None

PATIENT
  Age: 40 Year
  Sex: Female
  Weight: 73.8 kg

DRUGS (1)
  1. LEVOFLOXACIN [Suspect]
     Active Substance: LEVOFLOXACIN
     Indication: Sinusitis
     Dates: start: 20250331, end: 20250331

REACTIONS (6)
  - Vertigo [None]
  - Vomiting [None]
  - Gait disturbance [None]
  - Dehydration [None]
  - Hypophagia [None]
  - Decreased activity [None]

NARRATIVE: CASE EVENT DATE: 20250401
